FAERS Safety Report 24226594 (Version 3)
Quarter: 2024Q4

REPORT INFORMATION
  Report Type: Spontaneous
  Country: DE (occurrence: DE)
  Receive Date: 20240820
  Receipt Date: 20241004
  Transmission Date: 20250115
  Serious: No
  Sender: AUROBINDO
  Company Number: DE-AUROBINDO-AUR-APL-2024-038117

PATIENT
  Sex: Female
  Weight: 80 kg

DRUGS (4)
  1. AMOXICILLIN\CLAVULANIC ACID [Suspect]
     Active Substance: AMOXICILLIN\CLAVULANIC ACID
     Indication: Cystitis
     Dosage: 1 DOSAGE FORM
     Route: 048
     Dates: start: 20240722, end: 20240722
  2. AMOXICILLIN\CLAVULANIC ACID [Suspect]
     Active Substance: AMOXICILLIN\CLAVULANIC ACID
     Indication: Cystitis noninfective
  3. AMOXICILLIN\CLAVULANIC ACID [Suspect]
     Active Substance: AMOXICILLIN\CLAVULANIC ACID
     Indication: Pain
  4. AMOXICILLIN\CLAVULANIC ACID [Suspect]
     Active Substance: AMOXICILLIN\CLAVULANIC ACID
     Indication: Blood urine

REACTIONS (4)
  - Condition aggravated [Recovered/Resolved]
  - Cystitis noninfective [Recovered/Resolved]
  - Pain [Recovered/Resolved]
  - Drug ineffective [Unknown]

NARRATIVE: CASE EVENT DATE: 20240722
